FAERS Safety Report 5331650-6 (Version None)
Quarter: 2007Q2

REPORT INFORMATION
  Report Type: 
  Country: None (occurrence: None)
  Receive Date: 20070522
  Receipt Date: 20070515
  Transmission Date: 20071010
  Serious: Yes (Other)
  Sender: FDA-Public Use
  Company Number: GB-PFIZER INC-2007039662

PATIENT
  Age: 71 Year
  Sex: Female

DRUGS (3)
  1. REVATIO [Suspect]
     Route: 048
  2. WARFARIN SODIUM [Suspect]
     Indication: DEEP VEIN THROMBOSIS
  3. WARFARIN SODIUM [Suspect]
     Indication: PULMONARY EMBOLISM

REACTIONS (1)
  - INTERNATIONAL NORMALISED RATIO ABNORMAL [None]
